FAERS Safety Report 8879796 (Version 1)
Quarter: 2012Q4

REPORT INFORMATION
  Report Type: 
  Country: DE (occurrence: DE)
  Receive Date: 20121101
  Receipt Date: 20121101
  Transmission Date: 20130627
  Serious: Yes (Other)
  Sender: FDA-Public Use
  Company Number: DE-JNJFOC-20121012806

PATIENT
  Age: 34 Year
  Sex: Male
  Weight: 110 kg

DRUGS (1)
  1. RISPERDAL [Suspect]
     Indication: PRODUCT USED FOR UNKNOWN INDICATION
     Route: 048
     Dates: start: 20121021, end: 20121021

REACTIONS (4)
  - Drug abuse [Unknown]
  - Overdose [Unknown]
  - Chills [Unknown]
  - Restlessness [Unknown]
